FAERS Safety Report 5197756-X (Version None)
Quarter: 2006Q4

REPORT INFORMATION
  Report Type: 
  Country: None (occurrence: None)
  Receive Date: 20061228
  Receipt Date: 20061214
  Transmission Date: 20070319
  Serious: Yes (Life-Threatening, Hospitalization, Other)
  Sender: FDA-Public Use
  Company Number: 2006RR-04382

PATIENT
  Age: 43 Year
  Sex: Male

DRUGS (8)
  1. AMLODIPINE [Suspect]
     Dosage: 560 MG, ORAL
     Route: 048
  2. ASPIRIN [Suspect]
     Dosage: 7.5 G
  3. CITALOPRAM HYDROBROMIDE [Suspect]
     Dosage: 280 MG
     Route: 048
  4. FLUOXETINE [Suspect]
     Dosage: 600 MG
  5. FOLIC ACID [Suspect]
  6. ACETAMINOPHEN [Suspect]
     Dosage: 16 MG
  7. PERINDOPRIL ERBUMINE [Suspect]
     Dosage: 120MG
  8. ALCOHOL [Concomitant]

REACTIONS (5)
  - HYPOKALAEMIA [None]
  - HYPOTENSION [None]
  - METABOLIC ACIDOSIS [None]
  - OVERDOSE [None]
  - RENAL FAILURE [None]
